FAERS Safety Report 16084892 (Version 1)
Quarter: 2019Q2

REPORT INFORMATION
  Report Type: Spontaneous
  Country: PR (occurrence: PR)
  Receive Date: 20190318
  Receipt Date: 20190318
  Transmission Date: 20190711
  Serious: No
  Sender: FDA-Public Use
  Company Number: None

PATIENT
  Age: 21 Year
  Sex: Male
  Weight: 65.25 kg

DRUGS (3)
  1. CEFTRIAXONE. [Concomitant]
     Active Substance: CEFTRIAXONE
     Dates: start: 20190302, end: 20190312
  2. VANCOMYCIN [Suspect]
     Active Substance: VANCOMYCIN
     Indication: BACTERIAL INFECTION
     Dosage: ?          OTHER FREQUENCY:EVERY TWELVE HOURS;?
     Route: 041
     Dates: start: 20190302, end: 20190312
  3. VANCOMYCIN [Suspect]
     Active Substance: VANCOMYCIN
     Indication: ARTHRITIS
     Dosage: ?          OTHER FREQUENCY:EVERY TWELVE HOURS;?
     Route: 041
     Dates: start: 20190302, end: 20190312

REACTIONS (1)
  - Pruritus generalised [None]
